FAERS Safety Report 5211664-7 (Version None)
Quarter: 2007Q1

REPORT INFORMATION
  Report Type: 
  Country: None (occurrence: None)
  Receive Date: 20070118
  Receipt Date: 20070111
  Transmission Date: 20070707
  Serious: Yes (Death, Other)
  Sender: FDA-Public Use
  Company Number: US-BAYER-200710125BCC

PATIENT
  Age: 102 Year
  Sex: Female

DRUGS (2)
  1. ASPIRIN [Suspect]
     Indication: ARTHRITIS
     Route: 048
     Dates: start: 19280101, end: 19950101
  2. ASPIRIN [Suspect]
     Dosage: UNIT DOSE: 325 MG
     Route: 048
     Dates: start: 19950101, end: 19990101

REACTIONS (2)
  - DEAFNESS [None]
  - DEATH [None]
